FAERS Safety Report 4989495-2 (Version None)
Quarter: 2006Q2

REPORT INFORMATION
  Report Type: 
  Country: None (occurrence: None)
  Receive Date: 20060502
  Receipt Date: 20041230
  Transmission Date: 20061013
  Serious: Yes (Hospitalization, Other)
  Sender: FDA-Public Use
  Company Number: US-MERCK-0502USA00920

PATIENT
  Age: 77 Year
  Sex: Female
  Weight: 64 kg

DRUGS (1)
  1. VIOXX [Suspect]
     Indication: ARTHRITIS
     Route: 048
     Dates: start: 19990715, end: 20020217

REACTIONS (5)
  - COUGH [None]
  - DEAFNESS [None]
  - DEMENTIA [None]
  - MYOCARDIAL INFARCTION [None]
  - POLYTRAUMATISM [None]
